FAERS Safety Report 13800567 (Version 3)
Quarter: 2017Q4

REPORT INFORMATION
  Report Type: Spontaneous
  Country: US (occurrence: US)
  Receive Date: 20170727
  Receipt Date: 20171122
  Transmission Date: 20180320
  Serious: Yes (Hospitalization)
  Sender: FDA-Public Use
  Company Number: US-JNJFOC-20170719864

PATIENT
  Age: 77 Year
  Sex: Male
  Weight: 78.47 kg

DRUGS (4)
  1. INVOKAMET [Suspect]
     Active Substance: CANAGLIFLOZIN\METFORMIN HYDROCHLORIDE
     Indication: TYPE 2 DIABETES MELLITUS
     Dosage: DOSE: 50/1000 (UNITS UNSPECIFIED)
     Route: 048
     Dates: start: 20160315, end: 20170327
  2. JANUVIA [Concomitant]
     Active Substance: SITAGLIPTIN PHOSPHATE
     Indication: TYPE 2 DIABETES MELLITUS
     Route: 065
  3. INVOKAMET [Suspect]
     Active Substance: CANAGLIFLOZIN\METFORMIN HYDROCHLORIDE
     Indication: TYPE 2 DIABETES MELLITUS
     Dosage: DOSE: 50/1000 (UNITS UNSPECIFIED)
     Route: 048
     Dates: start: 20160428, end: 20170921
  4. INVOKAMET [Suspect]
     Active Substance: CANAGLIFLOZIN\METFORMIN HYDROCHLORIDE
     Indication: TYPE 2 DIABETES MELLITUS
     Dosage: DOSE: 150/1000 (UNITS UNSPECIFIED)
     Route: 048
     Dates: start: 19950223

REACTIONS (3)
  - Osteomyelitis [Not Recovered/Not Resolved]
  - Gangrene [Recovered/Resolved]
  - Treatment noncompliance [Unknown]

NARRATIVE: CASE EVENT DATE: 20170302
